FAERS Safety Report 7477394-6 (Version None)
Quarter: 2011Q2

REPORT INFORMATION
  Report Type: 
  Country: None (occurrence: None)
  Receive Date: 20110513
  Receipt Date: 20110504
  Transmission Date: 20111010
  Serious: No
  Sender: FDA-Public Use
  Company Number: US-BIOGENIDEC-2011BI017007

PATIENT
  Age: 43 Year
  Sex: Female

DRUGS (2)
  1. TYSABRI [Suspect]
     Indication: MULTIPLE SCLEROSIS
     Route: 042
     Dates: start: 20091102
  2. BACLOFEN [Concomitant]
     Indication: MUSCULOSKELETAL DISORDER

REACTIONS (3)
  - GAIT DISTURBANCE [None]
  - DYSSTASIA [None]
  - COORDINATION ABNORMAL [None]
